FAERS Safety Report 14477811 (Version 1)
Quarter: 2018Q1

REPORT INFORMATION
  Report Type: Report from Study
  Country: US (occurrence: US)
  Receive Date: 20180201
  Receipt Date: 20180201
  Transmission Date: 20180509
  Serious: No
  Sender: FDA-Public Use
  Company Number: US-EXELIXIS-CABO-17009343

PATIENT
  Age: 76 Year
  Sex: Male

DRUGS (17)
  1. GABAPENTIN. [Concomitant]
     Active Substance: GABAPENTIN
  2. SERTRALINE [Concomitant]
     Active Substance: SERTRALINE HYDROCHLORIDE
  3. CABOMETYX [Suspect]
     Active Substance: CABOZANTINIB S-MALATE
     Indication: RENAL CANCER
     Dosage: 60 MG, QD
     Route: 048
     Dates: start: 20170322
  4. GLYBURIDE. [Concomitant]
     Active Substance: GLYBURIDE
  5. HYDROCODONE [Concomitant]
     Active Substance: HYDROCODONE
  6. TAMSULOSIN [Concomitant]
     Active Substance: TAMSULOSIN
  7. CABOMETYX [Suspect]
     Active Substance: CABOZANTINIB S-MALATE
     Indication: METASTASES TO BONE
     Dosage: 60 MG, QOD
     Route: 048
     Dates: start: 20171023
  8. ASPIRIN. [Concomitant]
     Active Substance: ASPIRIN
  9. METOCLOPRAMIDE. [Concomitant]
     Active Substance: METOCLOPRAMIDE
  10. MECLIZINE [Concomitant]
     Active Substance: MECLIZINE HYDROCHLORIDE
  11. CLINDAMYCIN. [Concomitant]
     Active Substance: CLINDAMYCIN
  12. DOXYCYCLINE. [Concomitant]
     Active Substance: DOXYCYCLINE
  13. EVEROLIMUS. [Concomitant]
     Active Substance: EVEROLIMUS
  14. FAMOTIDINE. [Concomitant]
     Active Substance: FAMOTIDINE
  15. GEMFIBROZIL. [Concomitant]
     Active Substance: GEMFIBROZIL
  16. INSULIN GLARGINE [Concomitant]
     Active Substance: INSULIN GLARGINE
  17. ISOSORBIDE. [Concomitant]
     Active Substance: ISOSORBIDE

REACTIONS (7)
  - Stomatitis [Unknown]
  - Dry skin [Unknown]
  - Skin exfoliation [Unknown]
  - General physical health deterioration [Unknown]
  - Diarrhoea [Unknown]
  - Skin ulcer [Unknown]
  - Skin haemorrhage [Unknown]

NARRATIVE: CASE EVENT DATE: 20170415
